FAERS Safety Report 18033922 (Version 3)
Quarter: 2020Q4

REPORT INFORMATION
  Report Type: Spontaneous
  Country: BE (occurrence: BE)
  Receive Date: 20200716
  Receipt Date: 20201209
  Transmission Date: 20210113
  Serious: Yes (Life-Threatening, Hospitalization, Other)
  Sender: FDA-Public Use
  Company Number: NVSC2020BE182672

PATIENT
  Age: 48 Year
  Sex: Male

DRUGS (11)
  1. MIRTAZAPINE. [Suspect]
     Active Substance: MIRTAZAPINE
     Indication: COGNITIVE DISORDER
  2. VENLAFAXINE [Suspect]
     Active Substance: VENLAFAXINE HYDROCHLORIDE
     Dosage: 37.5 MG, QD
     Route: 065
  3. RIVASTIGMINE. [Concomitant]
     Active Substance: RIVASTIGMINE
     Indication: PARKINSON^S DISEASE
     Dosage: 4.5 MG, QD
     Route: 065
  4. VENLAFAXINE [Suspect]
     Active Substance: VENLAFAXINE HYDROCHLORIDE
     Indication: COGNITIVE DISORDER
     Dosage: 225 MG, QD (AFTER 6 DAYS)
     Route: 065
  5. VENLAFAXINE [Suspect]
     Active Substance: VENLAFAXINE HYDROCHLORIDE
     Dosage: 225 MG, QD
     Route: 065
  6. VENLAFAXINE [Suspect]
     Active Substance: VENLAFAXINE HYDROCHLORIDE
     Indication: DEPRESSION
     Dosage: 75 MG, QD
     Route: 065
  7. TRAZODONE [Suspect]
     Active Substance: TRAZODONE HYDROCHLORIDE
     Indication: DEPRESSION
     Dosage: 50 MG, QD
     Route: 065
  8. MIRTAZAPINE. [Suspect]
     Active Substance: MIRTAZAPINE
     Indication: DEPRESSION
     Dosage: 30 MG, QD
     Route: 065
  9. RIVASTIGMINE. [Concomitant]
     Active Substance: RIVASTIGMINE
     Indication: COGNITIVE DISORDER
     Dosage: 4.6 MG, DAILY
     Route: 065
  10. LEVODOPA [Concomitant]
     Active Substance: LEVODOPA
     Indication: PARKINSON^S DISEASE
     Dosage: 125 MG Q4H (6 TIMES A DAY)
     Route: 065
  11. LEVODOPA [Concomitant]
     Active Substance: LEVODOPA
     Indication: COGNITIVE DISORDER

REACTIONS (14)
  - Tachycardia [Recovered/Resolved]
  - Hypertonia [Recovered/Resolved]
  - Apathy [Recovered/Resolved]
  - Toxicity to various agents [Unknown]
  - Altered state of consciousness [Recovered/Resolved]
  - Hyperhidrosis [Recovered/Resolved]
  - Serotonin syndrome [Recovered/Resolved]
  - Clonus [Recovered/Resolved]
  - Hyperreflexia [Recovered/Resolved]
  - Blood creatine phosphokinase increased [Recovered/Resolved]
  - Confusional state [Recovered/Resolved]
  - Tremor [Recovered/Resolved]
  - Blood creatinine increased [Recovered/Resolved]
  - Hyperthermia [Recovered/Resolved]
